FAERS Safety Report 6996597-8 (Version None)
Quarter: 2010Q3

REPORT INFORMATION
  Report Type: 
  Country: None (occurrence: None)
  Receive Date: 20100918
  Receipt Date: 20090416
  Transmission Date: 20110219
  Serious: No
  Sender: FDA-Public Use
  Company Number: US-WYE-H09000609

PATIENT
  Sex: Male

DRUGS (1)
  1. EFFEXOR [Suspect]
     Dosage: 37.5 MG UNSPECIFIED FREQUENCY
     Route: 048

REACTIONS (2)
  - ABDOMINAL DISCOMFORT [None]
  - REACTION TO DRUG EXCIPIENTS [None]
